FAERS Safety Report 18498323 (Version 2)
Quarter: 2020Q4

REPORT INFORMATION
  Report Type: Spontaneous
  Country: IT (occurrence: IT)
  Receive Date: 20201112
  Receipt Date: 20201124
  Transmission Date: 20210114
  Serious: Yes (Other)
  Sender: FDA-Public Use
  Company Number: IT-TEVA-2020-IT-1847362

PATIENT
  Age: 61 Year
  Sex: Female

DRUGS (4)
  1. LORAZEPAM. [Suspect]
     Active Substance: LORAZEPAM
     Indication: PERSONALITY DISORDER
     Dosage: 20 MG
     Route: 048
     Dates: start: 20180406, end: 20180406
  2. CYMBALTA [Concomitant]
     Active Substance: DULOXETINE HYDROCHLORIDE
     Indication: PERSONALITY DISORDER
     Dosage: UNIT DOSE:1DOSAGEFORM
     Route: 048
  3. XANAX [Suspect]
     Active Substance: ALPRAZOLAM
     Indication: PERSONALITY DISORDER
     Dosage: 11 DOSAGEFORM
     Route: 048
     Dates: start: 20180406, end: 20180406
  4. LYRICA [Concomitant]
     Active Substance: PREGABALIN
     Indication: PERSONALITY DISORDER
     Dosage: 50MILLIGRAM
     Route: 048

REACTIONS (5)
  - Loss of consciousness [Recovering/Resolving]
  - Alcohol abuse [Recovering/Resolving]
  - Sopor [Recovering/Resolving]
  - Drug abuse [Recovering/Resolving]
  - Fall [Recovering/Resolving]

NARRATIVE: CASE EVENT DATE: 20180406
